FAERS Safety Report 10260434 (Version 6)
Quarter: 2015Q1

REPORT INFORMATION
  Report Type: Spontaneous
  Country: US (occurrence: US)
  Receive Date: 20140625
  Receipt Date: 20150313
  Transmission Date: 20150720
  Serious: Yes (Congenital Anomaly, Other)
  Sender: FDA-Public Use
  Company Number: US-ELI_LILLY_AND_COMPANY-US201406008394

PATIENT
  Age: 0 Day

DRUGS (6)
  1. MULTIVITAMIN                       /00831701/ [Concomitant]
     Active Substance: VITAMINS
     Indication: PRODUCT USED FOR UNKNOWN INDICATION
     Dosage: UNK, UNKNOWN
     Route: 064
  2. FAMCICLOVIR. [Concomitant]
     Active Substance: FAMCICLOVIR
     Indication: GENITAL HERPES
     Dosage: 25 MG, BID
     Route: 064
  3. PRENATAL VITAMINS                  /01549301/ [Concomitant]
     Active Substance: VITAMINS
     Indication: PRODUCT USED FOR UNKNOWN INDICATION
     Dosage: UNK, UNKNOWN
     Route: 064
  4. PROZAC [Suspect]
     Active Substance: FLUOXETINE HYDROCHLORIDE
     Dosage: 10 MG, QD
     Route: 064
  5. PROZAC [Suspect]
     Active Substance: FLUOXETINE HYDROCHLORIDE
     Indication: DEPRESSION
     Dosage: 20 MG, QD
     Route: 064
  6. ALOE VERA [Concomitant]
     Active Substance: ALOE VERA LEAF
     Indication: PRODUCT USED FOR UNKNOWN INDICATION
     Dosage: UNK, UNKNOWN
     Route: 064

REACTIONS (10)
  - Tibial torsion [Recovered/Resolved]
  - Arnold-Chiari malformation [Unknown]
  - Talipes [Unknown]
  - Inguinal hernia [Unknown]
  - Hydrocephalus [Unknown]
  - Congenital foot malformation [Recovered/Resolved]
  - Neurogenic bladder [Unknown]
  - Foetal exposure during pregnancy [Recovered/Resolved]
  - Spina bifida [Unknown]
  - Talipes [Recovered/Resolved]

NARRATIVE: CASE EVENT DATE: 19990513
